FAERS Safety Report 25425027 (Version 2)
Quarter: 2025Q3

REPORT INFORMATION
  Report Type: Spontaneous
  Country: US (occurrence: US)
  Receive Date: 20250611
  Receipt Date: 20250707
  Transmission Date: 20251021
  Serious: Yes (Other)
  Sender: BAUSCH AND LOMB
  Company Number: US-BAUSCH-BL-2025-007023

PATIENT
  Age: 80 Year
  Sex: Female
  Weight: 33.57 kg

DRUGS (2)
  1. XIFAXAN [Suspect]
     Active Substance: RIFAXIMIN
     Indication: Product used for unknown indication
     Dosage: 1 TABLET THREE TIMES DAILY FOR 2 WEEKS
     Route: 048
     Dates: start: 202502, end: 2025
  2. XIFAXAN [Suspect]
     Active Substance: RIFAXIMIN
     Dosage: 1 TABLET THREE TIMES DAILY FOR 2 WEEKS
     Route: 048
     Dates: start: 202505

REACTIONS (7)
  - Choking [Unknown]
  - Muscle strain [Recovering/Resolving]
  - Abdominal distension [Not Recovered/Not Resolved]
  - Wrong technique in product usage process [Unknown]
  - Product size issue [Unknown]
  - Retching [Unknown]
  - Product use complaint [Unknown]

NARRATIVE: CASE EVENT DATE: 20250101
